FAERS Safety Report 5204908-9 (Version None)
Quarter: 2007Q1

REPORT INFORMATION
  Report Type: 
  Country: None (occurrence: None)
  Receive Date: 20070110
  Receipt Date: 20061024
  Transmission Date: 20070707
  Serious: Yes (Hospitalization)
  Sender: FDA-Public Use
  Company Number: US-BRISTOL-MYERS SQUIBB COMPANY-13492327

PATIENT
  Sex: Male

DRUGS (2)
  1. ABILIFY [Suspect]
     Indication: BIPOLAR DISORDER
     Dates: start: 20060624
  2. DEPAKOTE [Suspect]
     Dates: start: 20060624

REACTIONS (3)
  - AMNESIA [None]
  - GAIT DISTURBANCE [None]
  - SALIVARY HYPERSECRETION [None]
